FAERS Safety Report 17435457 (Version 2)
Quarter: 2020Q1

REPORT INFORMATION
  Report Type: Spontaneous
  Country: US (occurrence: US)
  Receive Date: 20200219
  Receipt Date: 20200220
  Transmission Date: 20200409
  Serious: Yes (Other)
  Sender: FDA-Public Use
  Company Number: US-SA-2020SA040536

PATIENT
  Sex: Male

DRUGS (1)
  1. ZANTAC [Suspect]
     Active Substance: RANITIDINE HYDROCHLORIDE
     Dosage: UNK
     Dates: start: 2006, end: 2019

REACTIONS (3)
  - Anxiety [Unknown]
  - Adenocarcinoma of colon [Unknown]
  - Pain [Unknown]

NARRATIVE: CASE EVENT DATE: 201903
